FAERS Safety Report 6912573-5 (Version None)
Quarter: 2010Q3

REPORT INFORMATION
  Report Type: 
  Country: None (occurrence: None)
  Receive Date: 20100806
  Receipt Date: 20080804
  Transmission Date: 20110219
  Serious: No
  Sender: FDA-Public Use
  Company Number: US-PFIZER INC-2008058004

PATIENT
  Sex: Female
  Weight: 40.73 kg

DRUGS (1)
  1. VFEND [Suspect]
     Indication: PULMONARY MYCOSIS
     Route: 048
     Dates: start: 20080513

REACTIONS (6)
  - DRUG INEFFECTIVE [None]
  - DRUG LEVEL DECREASED [None]
  - NAUSEA [None]
  - PRURITUS [None]
  - PYREXIA [None]
  - RASH [None]
